FAERS Safety Report 4353168-X (Version None)
Quarter: 2004Q2

REPORT INFORMATION
  Report Type: 
  Country: None (occurrence: None)
  Receive Date: 20040504
  Receipt Date: 20040504
  Transmission Date: 20050107
  Serious: Yes (Hospitalization)
  Sender: FDA-Public Use
  Company Number: None

PATIENT
  Age: 68 Year
  Sex: Female

DRUGS (7)
  1. NIFEDIPINE [Suspect]
     Indication: HYPERTENSION
     Dosage: 1 QD /ORAL
     Route: 048
  2. LIPITOR [Concomitant]
  3. KCL TAB [Concomitant]
  4. LONAZEPAM [Concomitant]
  5. VIGANOX [Concomitant]
  6. MIRALAX [Concomitant]
  7. ACETAMINOPHEN AND HYDROCODONE BITARTRATE [Concomitant]

REACTIONS (3)
  - MYOCARDIAL INFARCTION [None]
  - PHARMACEUTICAL PRODUCT COMPLAINT [None]
  - THERAPEUTIC RESPONSE DECREASED [None]
